FAERS Safety Report 9845542 (Version 2)
Quarter: 2014Q1

REPORT INFORMATION
  Report Type: Spontaneous
  Country: US (occurrence: US)
  Receive Date: 20140127
  Receipt Date: 20140219
  Transmission Date: 20141002
  Serious: No
  Sender: FDA-Public Use
  Company Number: US-TEVA-458352USA

PATIENT
  Age: 79 Year
  Sex: Female
  Weight: 97.16 kg

DRUGS (11)
  1. PROAIR HFA [Suspect]
     Indication: PROPHYLAXIS AGAINST BRONCHOSPASM
     Dosage: 1 PUFF
     Dates: start: 20140122
  2. ADVAIR [Concomitant]
     Indication: ASTHMA
     Route: 055
  3. MAXAIR [Concomitant]
     Indication: ASTHMA
     Route: 055
  4. AMLODIPINE BESYLATE [Concomitant]
     Indication: HYPERTENSION
     Dosage: 2.5 MILLIGRAM DAILY;
     Route: 048
  5. MECLIZINE [Concomitant]
     Indication: VERTIGO
     Dosage: 25 MILLIGRAM DAILY;
     Route: 048
  6. FEOSOL [Concomitant]
     Indication: ANAEMIA
     Dosage: 975 MILLIGRAM DAILY;
     Route: 048
  7. PRAVASTATIN [Concomitant]
     Indication: BLOOD CHOLESTEROL INCREASED
     Dosage: 20 MILLIGRAM DAILY;
  8. DORZOLAMIDE HYDROCHLORIDE 2% [Concomitant]
     Indication: GLAUCOMA
     Dosage: 1 DROP IN EACH EYE BID
  9. ^LAT^ [Concomitant]
     Indication: GLAUCOMA
     Dosage: 1 DROP IN EACH EYE HS
  10. TRIAMTERENE [Concomitant]
     Indication: LOCAL SWELLING
  11. OMEPRAZOLE [Concomitant]
     Indication: GASTRIC ULCER
     Dosage: 20 MILLIGRAM DAILY;
     Route: 048

REACTIONS (6)
  - Oropharyngeal pain [Recovered/Resolved]
  - Throat irritation [Recovered/Resolved]
  - Respiratory disorder [Unknown]
  - Product taste abnormal [Recovered/Resolved]
  - Wrong technique in drug usage process [Unknown]
  - Intentional drug misuse [Unknown]
